FAERS Safety Report 23439958 (Version 1)
Quarter: 2024Q1

REPORT INFORMATION
  Report Type: Spontaneous
  Country: CN (occurrence: CN)
  Receive Date: 20240124
  Receipt Date: 20240124
  Transmission Date: 20240410
  Serious: Yes (Other)
  Sender: FDA-Public Use
  Company Number: CN-PFIZER INC-PV202400009039

PATIENT
  Age: 77 Year
  Sex: Female
  Weight: 60 kg

DRUGS (1)
  1. METHYLPREDNISOLONE [Suspect]
     Active Substance: METHYLPREDNISOLONE
     Indication: Rheumatoid arthritis
     Dosage: 16 MG, 1X/DAY
     Route: 048
     Dates: start: 20230826, end: 20231221

REACTIONS (2)
  - Cushingoid [Not Recovered/Not Resolved]
  - Central obesity [Not Recovered/Not Resolved]

NARRATIVE: CASE EVENT DATE: 20231206
